FAERS Safety Report 7478997-5 (Version None)
Quarter: 2011Q2

REPORT INFORMATION
  Report Type: 
  Country: None (occurrence: None)
  Receive Date: 20110511
  Receipt Date: 20110511
  Transmission Date: 20111010
  Serious: Yes (Disabling)
  Sender: FDA-Public Use
  Company Number: None

PATIENT
  Age: 79 Year
  Sex: Male
  Weight: 106.5953 kg

DRUGS (2)
  1. FLEXERIL [Suspect]
     Indication: BACK PAIN
     Dosage: 10 MG AS NEEDED
     Dates: start: 20100712, end: 20100801
  2. FLEXERIL [Suspect]
     Indication: SPINAL FRACTURE
     Dosage: 10 MG AS NEEDED
     Dates: start: 20100712, end: 20100801

REACTIONS (4)
  - SCOTOMA [None]
  - VISION BLURRED [None]
  - MACULAR DEGENERATION [None]
  - BLINDNESS [None]
